FAERS Safety Report 6881184-2 (Version None)
Quarter: 2010Q2

REPORT INFORMATION
  Report Type: 
  Country: None (occurrence: None)
  Receive Date: 20100630
  Receipt Date: 20100505
  Transmission Date: 20101027
  Serious: No
  Sender: FDA-Public Use
  Company Number: 2009-01087

PATIENT
  Age: 62 Year
  Sex: Male
  Weight: 33.5662 kg

DRUGS (3)
  1. ZICAM COLD REMEDY GEL SWABS [Suspect]
     Dosage: QID X 1 DAY
     Dates: start: 20090501, end: 20090502
  2. MUCINEX [Concomitant]
  3. AZITHROMYCIN [Concomitant]

REACTIONS (1)
  - ANOSMIA [None]
